FAERS Safety Report 12844030 (Version 3)
Quarter: 2016Q4

REPORT INFORMATION
  Report Type: Spontaneous
  Country: US (occurrence: US)
  Receive Date: 20161013
  Receipt Date: 20161107
  Transmission Date: 20170207
  Serious: Yes (Other)
  Sender: FDA-Public Use
  Company Number: US-BAYER-2016-194750

PATIENT
  Age: 56 Year
  Sex: Male
  Weight: 123 kg

DRUGS (10)
  1. CELECOXIB. [Suspect]
     Active Substance: CELECOXIB
     Indication: OSTEOARTHRITIS
     Dosage: 1 DF, BID
     Route: 048
     Dates: start: 20121128, end: 20130315
  2. REMERON [Concomitant]
     Active Substance: MIRTAZAPINE
     Indication: INSOMNIA
     Dosage: 1 DF, HS DAILY
     Route: 048
     Dates: start: 2006
  3. CELECOXIB. [Suspect]
     Active Substance: CELECOXIB
     Indication: RHEUMATOID ARTHRITIS
     Dosage: 1 DF, TID
     Route: 048
     Dates: start: 20121128, end: 20130315
  4. GEODON [Concomitant]
     Active Substance: ZIPRASIDONE HYDROCHLORIDE\ZIPRASIDONE MESYLATE
     Indication: BIPOLAR DISORDER
     Dosage: UNK, BID
     Route: 048
     Dates: start: 2006
  5. NEXIUM [Concomitant]
     Active Substance: ESOMEPRAZOLE MAGNESIUM
     Indication: PROPHYLAXIS
     Dosage: 1 DF, QD
     Route: 048
     Dates: start: 20121128
  6. LORAZEPAM. [Concomitant]
     Active Substance: LORAZEPAM
     Indication: ANXIETY
     Dosage: UNK, PRN
     Route: 048
     Dates: start: 2011
  7. NTG [Concomitant]
     Active Substance: NITROGLYCERIN
     Indication: ANGINA PECTORIS
     Dosage: UNK, PRN 3 Q 5MIN
     Route: 060
     Dates: start: 2010
  8. METOPROLOL TARTRATE. [Suspect]
     Active Substance: METOPROLOL TARTRATE
     Indication: HYPERTENSION
     Dosage: 25 MG, QD
     Route: 048
     Dates: start: 2012
  9. BAYER LOW DOSE [Suspect]
     Active Substance: ASPIRIN
     Indication: CARDIOVASCULAR EVENT PROPHYLAXIS
     Dosage: 81 MG, QD
     Route: 048
     Dates: start: 2011, end: 20130418
  10. REMERON [Concomitant]
     Active Substance: MIRTAZAPINE
     Indication: DEPRESSION

REACTIONS (8)
  - Dysarthria [None]
  - Facial paresis [Recovering/Resolving]
  - Hemiparesis [Recovering/Resolving]
  - Sensory disturbance [Recovering/Resolving]
  - Headache [None]
  - Cerebrovascular accident [Recovered/Resolved]
  - Peripheral swelling [Recovering/Resolving]
  - Hypoaesthesia [Recovering/Resolving]

NARRATIVE: CASE EVENT DATE: 20130305
